FAERS Safety Report 8547943-5 (Version None)
Quarter: 2012Q3

REPORT INFORMATION
  Report Type: 
  Country: None (occurrence: None)
  Receive Date: 20120728
  Receipt Date: 20120608
  Transmission Date: 20120928
  Serious: Yes (Other)
  Sender: FDA-Public Use
  Company Number: US-ELI_LILLY_AND_COMPANY-US201205006923

PATIENT
  Sex: Female
  Weight: 43.1 kg

DRUGS (5)
  1. MIRALAX [Concomitant]
     Indication: CONSTIPATION
  2. SOMATROPIN RDNA [Suspect]
     Dosage: 1.7 MG, UNK
     Dates: start: 20110516
  3. SOMATROPIN RDNA [Suspect]
     Dosage: 2.0 MG, QD
     Dates: start: 20110501, end: 20110807
  4. SOMATROPIN RDNA [Suspect]
     Dosage: UNK
     Dates: start: 20120301
  5. SOMATROPIN RDNA [Suspect]
     Indication: GROWTH HORMONE DEFICIENCY
     Dosage: 1.4 MG, QD
     Dates: start: 20100406, end: 20110515

REACTIONS (1)
  - SUICIDAL IDEATION [None]
